FAERS Safety Report 8102315-2 (Version None)
Quarter: 2012Q1

REPORT INFORMATION
  Report Type: 
  Country: None (occurrence: None)
  Receive Date: 20120201
  Receipt Date: 20120123
  Transmission Date: 20120608
  Serious: Yes (Hospitalization, Other)
  Sender: FDA-Public Use
  Company Number: US-PFIZER INC-2010007239

PATIENT
  Sex: Male
  Weight: 17.9 kg

DRUGS (4)
  1. DILANTIN-125 [Suspect]
     Indication: CONVULSION
     Dosage: 50 MG, UNK
     Route: 048
     Dates: start: 20010507, end: 20010528
  2. VALPROIC ACID [Concomitant]
     Indication: CONVULSION
  3. DILANTIN-125 [Suspect]
     Dosage: 50 MG, 2X/DAY
     Dates: start: 20010515
  4. DILANTIN-125 [Suspect]
     Dosage: 150 MG, 2X/DAY
     Route: 048
     Dates: start: 20010521

REACTIONS (1)
  - STEVENS-JOHNSON SYNDROME [None]
